FAERS Safety Report 18633031 (Version 1)
Quarter: 2020Q4

REPORT INFORMATION
  Report Type: Report from Study
  Country: None (occurrence: US)
  Receive Date: 20201218
  Receipt Date: 20201218
  Transmission Date: 20210114
  Serious: Yes (Hospitalization)
  Sender: FDA-Public Use
  Company Number: US-ABBVIE-20K-163-3590050-00

PATIENT
  Sex: Male

DRUGS (3)
  1. VENCLEXTA [Suspect]
     Active Substance: VENETOCLAX
     Indication: MYELODYSPLASTIC SYNDROME
     Route: 048
  2. VENCLEXTA [Suspect]
     Active Substance: VENETOCLAX
     Dosage: 1 TABLET BY MOUTH EVERY DAY, 14 DAYS ON 14 DAYS OFF Q 28 DAYS
     Route: 048
     Dates: start: 20201215
  3. VENCLEXTA [Suspect]
     Active Substance: VENETOCLAX
     Route: 048

REACTIONS (2)
  - Off label use [Unknown]
  - Transfusion [Unknown]
